FAERS Safety Report 6029452-0 (Version None)
Quarter: 2008Q4

REPORT INFORMATION
  Report Type: 
  Country: None (occurrence: None)
  Receive Date: 20081222
  Receipt Date: 20081121
  Transmission Date: 20090506
  Serious: No
  Sender: FDA-Public Use
  Company Number: ALL1-2008-03267

PATIENT
  Age: 5 Year
  Sex: Female
  Weight: 23.1 kg

DRUGS (3)
  1. VYVANSE [Suspect]
     Indication: ATTENTION DEFICIT/HYPERACTIVITY DISORDER
     Dosage: 20 MG, 1X/DAY:QD, ORAL
     Route: 048
     Dates: start: 20081108
  2. SINGULAIR /01362601/ (MONTELUKAST) [Concomitant]
  3. TAN DUR SUSPENSION [Concomitant]

REACTIONS (5)
  - AFFECT LABILITY [None]
  - CONJUNCTIVITIS INFECTIVE [None]
  - INSOMNIA [None]
  - OFF LABEL USE [None]
  - TIC [None]
